FAERS Safety Report 12085242 (Version 1)
Quarter: 2016Q1

REPORT INFORMATION
  Report Type: Spontaneous
  Country: US (occurrence: US)
  Receive Date: 20160217
  Receipt Date: 20160217
  Transmission Date: 20160526
  Serious: Yes (Other)
  Sender: FDA-Public Use
  Company Number: US-SA-2016SA031639

PATIENT
  Sex: Male

DRUGS (1)
  1. TRENTAL [Suspect]
     Active Substance: PENTOXIFYLLINE
     Route: 065

REACTIONS (1)
  - Atrial fibrillation [Unknown]
